FAERS Safety Report 7393751-0 (Version None)
Quarter: 2011Q2

REPORT INFORMATION
  Report Type: 
  Country: None (occurrence: None)
  Receive Date: 20110405
  Receipt Date: 20110329
  Transmission Date: 20111010
  Serious: Yes (Other)
  Sender: FDA-Public Use
  Company Number: JP-ASTELLAS-2011JP000827

PATIENT
  Sex: Female

DRUGS (5)
  1. VESICARE [Suspect]
     Indication: HYPERTONIC BLADDER
     Dosage: 2.5 MG, UID/QD
     Route: 048
     Dates: start: 20101011, end: 20110124
  2. GOSHAJINKIGAN [Concomitant]
     Indication: HYPOAESTHESIA
     Dosage: 2.5 MG, TID
     Route: 048
     Dates: start: 20100531
  3. GASTER [Concomitant]
     Indication: GASTRITIS
     Dosage: 20 MG, UID/QD
     Route: 048
     Dates: start: 20100531
  4. OPALMON [Concomitant]
     Indication: LUMBAR SPINAL STENOSIS
     Dosage: 0.5 UG, TID
     Route: 048
     Dates: start: 20100531
  5. ONEALFA [Concomitant]
     Indication: OSTEOPOROSIS
     Dosage: 0.5 UG, UID/QD
     Route: 048
     Dates: start: 20100531

REACTIONS (1)
  - SUPRAVENTRICULAR TACHYCARDIA [None]
